FAERS Safety Report 19778754 (Version 1)
Quarter: 2021Q3

REPORT INFORMATION
  Report Type: Spontaneous
  Country: US (occurrence: US)
  Receive Date: 20210902
  Receipt Date: 20210902
  Transmission Date: 20211014
  Serious: No
  Sender: FDA-Public Use
  Company Number: None

PATIENT
  Age: 71 Year
  Sex: Female
  Weight: 78.89 kg

DRUGS (13)
  1. CARVEDILOL. [Concomitant]
     Active Substance: CARVEDILOL
  2. PROCHLORPERAZINE. [Concomitant]
     Active Substance: PROCHLORPERAZINE
  3. CALCIUM VIT D [Concomitant]
     Active Substance: CALCIUM\CHOLECALCIFEROL
  4. TRILEPTAL [Concomitant]
     Active Substance: OXCARBAZEPINE
  5. LOSARTAN. [Concomitant]
     Active Substance: LOSARTAN
  6. CAPECITABINE. [Suspect]
     Active Substance: CAPECITABINE
     Indication: ANAL CANCER
     Dosage: ?          OTHER FREQUENCY:BID M?F;?
     Route: 048
     Dates: start: 20210816
  7. LOPERAMIDE [Concomitant]
     Active Substance: LOPERAMIDE
  8. MAGNESIUM [Concomitant]
     Active Substance: MAGNESIUM
  9. ONDANSETRON [Concomitant]
     Active Substance: ONDANSETRON
  10. GABAPENTIN. [Concomitant]
     Active Substance: GABAPENTIN
  11. SIMVASTATIN. [Concomitant]
     Active Substance: SIMVASTATIN
  12. CITALOPRAM [Concomitant]
     Active Substance: CITALOPRAM HYDROBROMIDE
  13. XARELTO [Concomitant]
     Active Substance: RIVAROXABAN

REACTIONS (2)
  - Diarrhoea [None]
  - Nausea [None]

NARRATIVE: CASE EVENT DATE: 20210901
